FAERS Safety Report 17090847 (Version 1)
Quarter: 2019Q4

REPORT INFORMATION
  Report Type: Spontaneous
  Country: US (occurrence: US)
  Receive Date: 20191128
  Receipt Date: 20191128
  Transmission Date: 20200122
  Serious: Yes (Other)
  Sender: FDA-Public Use
  Company Number: None

PATIENT
  Age: 60 Year
  Weight: 68.4 kg

DRUGS (13)
  1. FOLIC ACID (PHYSICIAN PRESCRIBED) [Concomitant]
  2. BENADRYL  0 TO 150 MG [Concomitant]
  3. IRON + BIOTIN SUPPLEMENTS [Concomitant]
  4. PHENYLEPHRINE HCL - AS + WHEN NEEDED [Concomitant]
  5. LOSARTAN POTASSIUM 100 MG/DAY [Concomitant]
  6. FLUTICASONE PROPIONATE 50 MCG/2-4 SPRAYSHOTS/NOSTRIL/DAY [Concomitant]
  7. TYLENOL 0 TO 3000 MG AS NEEDED [Concomitant]
  8. VIT D + VIT B COMPLEX SUPPLEMENTS [Concomitant]
  9. HYDROCORTISONE CREAM - AS NEEDED [Concomitant]
  10. SULFA/TRIMETH 800/160 MG [Suspect]
     Active Substance: SULFAMETHOXAZOLE\TRIMETHOPRIM
     Indication: INFECTION PROPHYLAXIS
     Dosage: ?          QUANTITY:1 CAPSULE(S);?
     Route: 048
     Dates: start: 20191125, end: 20191126
  11. OCCASIONAL ASPIRIN (30MG, 3 TO 8 TIMES/MONTH AS PROPHYLAXIS AGAINST STROKE + CARDIAC ARTERY THROMBOSIS [Concomitant]
  12. MULTIVITAMIN-MULTIMERAL TABS [Concomitant]
  13. TAMSULOSIN 0.4MG/DAY [Concomitant]

REACTIONS (5)
  - Vomiting [None]
  - Suspected product contamination [None]
  - Crime [None]
  - Ill-defined disorder [None]
  - Nausea [None]

NARRATIVE: CASE EVENT DATE: 20191125
